FAERS Safety Report 19051285 (Version 1)
Quarter: 2021Q1

REPORT INFORMATION
  Report Type: Spontaneous
  Country: US (occurrence: US)
  Receive Date: 20210324
  Receipt Date: 20210324
  Transmission Date: 20210420
  Serious: Yes (Life-Threatening)
  Sender: FDA-Public Use
  Company Number: None

PATIENT
  Age: 25 Year
  Sex: Female
  Weight: 93.15 kg

DRUGS (3)
  1. ADERALL [Concomitant]
  2. FLAGYL [Suspect]
     Active Substance: METRONIDAZOLE\METRONIDAZOLE HYDROCHLORIDE
     Indication: BACTERIAL VAGINOSIS
     Route: 048
     Dates: start: 20210322, end: 20210323
  3. WELLBUTRIN [Concomitant]
     Active Substance: BUPROPION HYDROCHLORIDE

REACTIONS (8)
  - Depression [None]
  - Panic attack [None]
  - Thinking abnormal [None]
  - Fatigue [None]
  - Near death experience [None]
  - Dissociation [None]
  - Suicidal ideation [None]
  - Communication disorder [None]

NARRATIVE: CASE EVENT DATE: 20210322
